FAERS Safety Report 8820783 (Version 2)
Quarter: 2013Q4

REPORT INFORMATION
  Report Type: Report from Study
  Country: GB (occurrence: GB)
  Receive Date: 20121002
  Receipt Date: 20131010
  Transmission Date: 20140711
  Serious: Yes (Death, Hospitalization, Other)
  Sender: FDA-Public Use
  Company Number: GB-ROCHE-710642

PATIENT
  Sex: 0

DRUGS (2)
  1. BEVACIZUMAB [Suspect]
     Indication: DIABETIC RETINAL OEDEMA
     Dosage: 1.25 MG IN 0.05 ML; FORM ALSO REPORTED AS PRE-FILLED SYRINGE
     Route: 050
  2. BEVACIZUMAB [Suspect]
     Indication: OFF LABEL USE

REACTIONS (6)
  - Myocardial infarction [Fatal]
  - Diabetic foot [Unknown]
  - Cholecystectomy [Unknown]
  - Dyspnoea [Unknown]
  - Chest pain [Unknown]
  - Ocular hypertension [Unknown]
